FAERS Safety Report 7104835-6 (Version None)
Quarter: 2010Q4

REPORT INFORMATION
  Report Type: 
  Country: None (occurrence: None)
  Receive Date: 20101116
  Receipt Date: 20101109
  Transmission Date: 20110411
  Serious: Yes (Life-Threatening, Hospitalization, Other)
  Sender: FDA-Public Use
  Company Number: JP-JNJFOC-20100903165

PATIENT
  Sex: Male

DRUGS (5)
  1. LEVOFLOXACIN [Suspect]
     Indication: ENTERITIS INFECTIOUS
     Route: 048
  2. LEVOFLOXACIN [Suspect]
     Indication: ABDOMINAL PAIN
     Route: 048
  3. BIOFERMIN R [Concomitant]
     Indication: ILL-DEFINED DISORDER
     Route: 065
  4. AMLODIPINE [Concomitant]
     Indication: ILL-DEFINED DISORDER
     Route: 065
  5. NATRIX [Concomitant]
     Indication: ILL-DEFINED DISORDER
     Route: 065

REACTIONS (2)
  - AGRANULOCYTOSIS [None]
  - PNEUMONIA [None]
